FAERS Safety Report 22218747 (Version 2)
Quarter: 2023Q2

REPORT INFORMATION
  Report Type: Spontaneous
  Country: SK (occurrence: SK)
  Receive Date: 20230417
  Receipt Date: 20230424
  Transmission Date: 20230721
  Serious: Yes (Hospitalization)
  Sender: FDA-Public Use
  Company Number: SK-PFM-2023-02206

PATIENT
  Age: 63 Year
  Sex: Female

DRUGS (3)
  1. BINIMETINIB [Suspect]
     Active Substance: BINIMETINIB
     Indication: Malignant melanoma
     Dosage: 90 MG, TID (3/DAY),(3 TABLETS OF 15MG, TWICE A DAY, DOSAGE: 3-0-3)
     Route: 048
     Dates: start: 202008, end: 202105
  2. ENCORAFENIB [Suspect]
     Active Substance: ENCORAFENIB
     Indication: Malignant melanoma
     Dosage: 450 MG, QD (1/DAY), (6 CAPSULES OF 75MG, QD (1/DAY),
     Route: 048
     Dates: start: 202008, end: 202105
  3. ALLOPURINOL [Concomitant]
     Active Substance: ALLOPURINOL
     Dosage: UNK

REACTIONS (2)
  - Skin toxicity [Unknown]
  - Rash [Unknown]

NARRATIVE: CASE EVENT DATE: 20210501
